FAERS Safety Report 5033235-8 (Version None)
Quarter: 2006Q2

REPORT INFORMATION
  Report Type: 
  Country: None (occurrence: None)
  Receive Date: 20060620
  Receipt Date: 20060607
  Transmission Date: 20061013
  Serious: Yes (Hospitalization)
  Sender: FDA-Public Use
  Company Number: TOR 2006-0010

PATIENT
  Age: 86 Year
  Sex: Male

DRUGS (6)
  1. FARSTON (TORMIFENE) [Suspect]
     Indication: BREAST CANCER
     Dosage: 40 MG
     Route: 048
     Dates: start: 20050906, end: 20051215
  2. XELODA [Suspect]
     Indication: BREAST CANCER
     Dosage: 1800 MG
     Route: 048
     Dates: start: 20040520, end: 20041125
  3. XELODA [Suspect]
     Indication: BREAST CANCER
     Dosage: 1800 MG
     Route: 048
     Dates: start: 20050203, end: 20051215
  4. ARIMIDEX [Suspect]
     Indication: BREAST CANCER
     Dosage: 1 MG
     Route: 048
     Dates: start: 20041028, end: 20050908
  5. ENDOXAN [Suspect]
     Indication: BREAST CANCER
     Dosage: 100 MG
     Route: 048
     Dates: start: 20040819, end: 20041124
  6. SHA-KU-YA-KU-KANN-ZO-U-YU [Concomitant]

REACTIONS (1)
  - INTERSTITIAL LUNG DISEASE [None]
